FAERS Safety Report 4295766-8 (Version None)
Quarter: 2004Q1

REPORT INFORMATION
  Report Type: 
  Country: None (occurrence: None)
  Receive Date: 20040216
  Receipt Date: 20031030
  Transmission Date: 20041129
  Serious: No
  Sender: FDA-Public Use
  Company Number: US-GLAXOSMITHKLINE-A0432317A

PATIENT
  Age: 44 Year
  Sex: Female
  Weight: 85 kg

DRUGS (5)
  1. LAMICTAL [Suspect]
     Indication: BIPOLAR DISORDER
     Dosage: 25MG TWICE PER DAY
     Route: 048
     Dates: start: 20030801, end: 20030901
  2. DEPAKOTE ER [Suspect]
     Indication: BIPOLAR DISORDER
     Dosage: 150MG UNKNOWN
     Route: 048
  3. EFFEXOR [Suspect]
     Indication: BIPOLAR DISORDER
     Dosage: 150MG PER DAY
     Route: 048
  4. NEURONTIN [Suspect]
     Indication: BIPOLAR DISORDER
     Dosage: 100MG PER DAY
     Route: 048
  5. LORAZEPAM [Suspect]
     Indication: BIPOLAR DISORDER
     Dosage: .5MG AS REQUIRED
     Route: 048

REACTIONS (1)
  - PREGNANCY [None]
